FAERS Safety Report 5834848-3 (Version None)
Quarter: 2008Q3

REPORT INFORMATION
  Report Type: 
  Country: None (occurrence: None)
  Receive Date: 20080729
  Receipt Date: 20080110
  Transmission Date: 20090109
  Serious: No
  Sender: FDA-Public Use
  Company Number: 2007120024

PATIENT
  Age: 80 Year
  Sex: Female
  Weight: 74.3899 kg

DRUGS (1)
  1. OPTIVAR [Suspect]
     Indication: ILL-DEFINED DISORDER
     Dosage: 4 DROP (2 DROP, 2 IN 1 D),OPHTHALMIC
     Route: 047
     Dates: start: 20070628, end: 20070628

REACTIONS (5)
  - CONJUNCTIVITIS ALLERGIC [None]
  - EYE IRRITATION [None]
  - EYE PRURITUS [None]
  - EYE SWELLING [None]
  - OCULAR HYPERAEMIA [None]
